FAERS Safety Report 18453225 (Version 1)
Quarter: 2020Q4

REPORT INFORMATION
  Report Type: Spontaneous
  Country: US (occurrence: US)
  Receive Date: 20201102
  Receipt Date: 20201102
  Transmission Date: 20210114
  Serious: Yes (Hospitalization)
  Sender: FDA-Public Use
  Company Number: None

PATIENT
  Sex: Female

DRUGS (9)
  1. OCREVUS [Concomitant]
     Active Substance: OCRELIZUMAB
  2. RAMIPRIL. [Concomitant]
     Active Substance: RAMIPRIL
  3. TIZANIDINE. [Concomitant]
     Active Substance: TIZANIDINE
  4. FEROSUL [Concomitant]
     Active Substance: FERROUS SULFATE
  5. ENTECAVIR. [Concomitant]
     Active Substance: ENTECAVIR
  6. DULOXETINE. [Concomitant]
     Active Substance: DULOXETINE
  7. ALBUTEROL HFA [Concomitant]
     Active Substance: ALBUTEROL SULFATE
  8. GABAPENTIN. [Concomitant]
     Active Substance: GABAPENTIN
  9. DALFAMPRIDINE. [Suspect]
     Active Substance: DALFAMPRIDINE
     Indication: MULTIPLE SCLEROSIS
     Dosage: ?          OTHER FREQUENCY:EVERY 12 HOURS;?
     Route: 048
     Dates: start: 20200214

REACTIONS (1)
  - Condition aggravated [None]
